FAERS Safety Report 9975338 (Version 1)
Quarter: 2014Q1

REPORT INFORMATION
  Report Type: Report from Study
  Country: US (occurrence: US)
  Receive Date: 20140306
  Receipt Date: 20140306
  Transmission Date: 20141002
  Serious: No
  Sender: FDA-Public Use
  Company Number: US-ABBVIE-13P-163-1155533-00

PATIENT
  Age: 57 Year
  Sex: Female

DRUGS (5)
  1. HUMIRA [Suspect]
     Indication: PSORIATIC ARTHROPATHY
  2. METOPROLOL [Concomitant]
     Indication: HYPERTENSION
  3. LISINOPRIL [Concomitant]
     Indication: HYPERTENSION
  4. VITAMIN E [Concomitant]
     Indication: LIVER DISORDER
  5. CLOBETASOL PROPIONATE [Concomitant]
     Indication: PSORIASIS

REACTIONS (2)
  - Wrong technique in drug usage process [Unknown]
  - Pain in extremity [Unknown]
